FAERS Safety Report 8567427-8 (Version None)
Quarter: 2012Q3

REPORT INFORMATION
  Report Type: 
  Country: None (occurrence: None)
  Receive Date: 20120803
  Receipt Date: 20120731
  Transmission Date: 20120928
  Serious: Yes (Other)
  Sender: FDA-Public Use
  Company Number: PHHY2012AU066452

PATIENT
  Sex: Male

DRUGS (1)
  1. CLOZARIL [Suspect]
     Route: 048
     Dates: start: 20060825

REACTIONS (3)
  - EJECTION FRACTION DECREASED [None]
  - SYSTOLIC DYSFUNCTION [None]
  - CARDIAC DISORDER [None]
